FAERS Safety Report 4692359-5 (Version None)
Quarter: 2005Q2

REPORT INFORMATION
  Report Type: 
  Country: None (occurrence: None)
  Receive Date: 20050614
  Receipt Date: 20050607
  Transmission Date: 20051028
  Serious: Yes (Life-Threatening, Hospitalization)
  Sender: FDA-Public Use
  Company Number: 050608-0000660

PATIENT
  Age: 21 Year
  Sex: Female

DRUGS (9)
  1. CLORAZEPATE DIPOTASSIUM [Suspect]
     Dosage: 10 MG QD PO
     Route: 048
     Dates: start: 20050302, end: 20050308
  2. DEPACON (VAPROATE SODIUM) [Suspect]
     Indication: CONVULSION PROPHYLAXIS
     Dosage: 500 MG TID IV
     Route: 042
     Dates: start: 20050302, end: 20050310
  3. METAMIZOLE MAGNESIUM (METAMIZOLE MAGNESIUM) [Suspect]
     Indication: PYREXIA
     Dosage: 2.0 MG TID IV
     Route: 042
     Dates: start: 20050301, end: 20050308
  4. OMEPRAZOLE [Suspect]
     Dosage: 40 MG QD
     Dates: start: 20050302, end: 20050308
  5. ACETAMINOPHEN [Suspect]
     Dosage: 4.0 GM; QID; IV
     Route: 042
     Dates: start: 20050302, end: 20050308
  6. KETOROLAC TROMETHAMINE [Suspect]
     Dosage: 90.0 MG; TID; IV
     Route: 042
     Dates: start: 20050302, end: 20050308
  7. BUPRENORPHINE HCL [Concomitant]
  8. HYDROCHLORIDE [Concomitant]
  9. ONDANSETRON HYDROCHLORIDE [Concomitant]

REACTIONS (2)
  - CEREBROVASCULAR OPERATION [None]
  - PANCYTOPENIA [None]
